FAERS Safety Report 21025995 (Version 1)
Quarter: 2022Q2

REPORT INFORMATION
  Report Type: Spontaneous
  Country: US (occurrence: US)
  Receive Date: 20220630
  Receipt Date: 20220630
  Transmission Date: 20220721
  Serious: No
  Sender: FDA-Public Use
  Company Number: US-GSKCCFUS-Case-01419438_AE-81629

PATIENT
  Sex: Female

DRUGS (1)
  1. NUCALA [Suspect]
     Active Substance: MEPOLIZUMAB
     Indication: Asthma
     Dosage: 100 MG/ML, Z, ONCE A MONTH
     Dates: start: 202112

REACTIONS (3)
  - Exposure via skin contact [Unknown]
  - Underdose [Unknown]
  - Accidental exposure to product [Unknown]
